FAERS Safety Report 14420350 (Version 1)
Quarter: 2018Q1

REPORT INFORMATION
  Report Type: Spontaneous
  Country: US (occurrence: US)
  Receive Date: 20180122
  Receipt Date: 20180122
  Transmission Date: 20180509
  Serious: Yes (Other)
  Sender: FDA-Public Use
  Company Number: US-ROCHE-1944614

PATIENT
  Age: 84 Year
  Sex: Male
  Weight: 56.3 kg

DRUGS (2)
  1. RITUXAN [Suspect]
     Active Substance: RITUXIMAB
     Dosage: ONCE A WEEK FOR 5 WEEKS
     Route: 042
     Dates: start: 201609, end: 20161027
  2. RITUXAN [Suspect]
     Active Substance: RITUXIMAB
     Indication: LYMPHOMA
     Route: 042
     Dates: start: 2004, end: 2006

REACTIONS (5)
  - Gastric disorder [Recovered/Resolved]
  - Rash [Not Recovered/Not Resolved]
  - Lymphoma [Unknown]
  - Pruritus [Not Recovered/Not Resolved]
  - Abdominal pain upper [Recovered/Resolved]

NARRATIVE: CASE EVENT DATE: 201604
